FAERS Safety Report 14375310 (Version 4)
Quarter: 2018Q3

REPORT INFORMATION
  Report Type: Spontaneous
  Country: US (occurrence: US)
  Receive Date: 20180111
  Receipt Date: 20180921
  Transmission Date: 20181010
  Serious: No
  Sender: FDA-Public Use
  Company Number: US-GLAXOSMITHKLINE-US2018003281

PATIENT
  Age: 61 Year
  Sex: Female

DRUGS (2)
  1. TANZEUM [Suspect]
     Active Substance: ALBIGLUTIDE
     Indication: DIABETES MELLITUS
     Dosage: 30 MG, WE
     Route: 058
     Dates: start: 201706
  2. TANZEUM [Suspect]
     Active Substance: ALBIGLUTIDE
     Dosage: 30 MG, WE
     Dates: start: 201705

REACTIONS (2)
  - Drug dose omission [Unknown]
  - Product quality issue [Unknown]

NARRATIVE: CASE EVENT DATE: 201801
